FAERS Safety Report 25614449 (Version 1)
Quarter: 2025Q3

REPORT INFORMATION
  Report Type: Spontaneous
  Country: AU (occurrence: AU)
  Receive Date: 20250729
  Receipt Date: 20250729
  Transmission Date: 20251020
  Serious: Yes (Hospitalization, Other)
  Sender: NOVO NORDISK
  Company Number: AU-NOVOPROD-1482437

PATIENT
  Sex: Female

DRUGS (10)
  1. SAXENDA [Suspect]
     Active Substance: LIRAGLUTIDE
     Indication: Weight control
     Route: 058
     Dates: start: 20231024, end: 20240325
  2. LYRICA [Concomitant]
     Active Substance: PREGABALIN
     Indication: Fibromyalgia
  3. ACETAMINOPHEN\CODEINE PHOSPHATE\DOXYLAMINE SUCCINATE [Concomitant]
     Active Substance: ACETAMINOPHEN\CODEINE PHOSPHATE\DOXYLAMINE SUCCINATE
  4. LEVOTHYROXINE SODIUM [Concomitant]
     Active Substance: LEVOTHYROXINE SODIUM
  5. ACETAMINOPHEN\CODEINE PHOSPHATE [Concomitant]
     Active Substance: ACETAMINOPHEN\CODEINE PHOSPHATE
     Indication: Migraine
  6. ESCITALOPRAM OXALATE [Concomitant]
     Active Substance: ESCITALOPRAM OXALATE
     Indication: Depression
  7. LEVONORGESTREL [Concomitant]
     Active Substance: LEVONORGESTREL
     Indication: Heavy menstrual bleeding
  8. ROSUVASTATIN [Concomitant]
     Active Substance: ROSUVASTATIN
     Indication: Hypercholesterolaemia
  9. ROSUVASTATIN [Concomitant]
     Active Substance: ROSUVASTATIN
     Indication: Hypertriglyceridaemia
  10. SEMAGLUTIDE [Suspect]
     Active Substance: SEMAGLUTIDE
     Indication: Product used for unknown indication

REACTIONS (2)
  - Pancreatic islets hyperplasia [Not Recovered/Not Resolved]
  - Pancreatitis acute [Not Recovered/Not Resolved]

NARRATIVE: CASE EVENT DATE: 20240301
